FAERS Safety Report 6092597-3 (Version None)
Quarter: 2009Q1

REPORT INFORMATION
  Report Type: 
  Country: None (occurrence: None)
  Receive Date: 20090225
  Receipt Date: 20080625
  Transmission Date: 20090719
  Serious: No
  Sender: FDA-Public Use
  Company Number: US-BRISTOL-MYERS SQUIBB COMPANY-14241186

PATIENT
  Age: 30 Year
  Sex: Male

DRUGS (3)
  1. KENALOG-10 [Suspect]
     Dosage: IT IS A SECOND INJECTION.
     Dates: start: 20080404
  2. PERCOCET [Concomitant]
  3. VALIUM [Concomitant]

REACTIONS (1)
  - INJECTION SITE REACTION [None]
